FAERS Safety Report 9659228 (Version 2)
Quarter: 2014Q1

REPORT INFORMATION
  Report Type: Spontaneous
  Country: JP (occurrence: JP)
  Receive Date: 20131031
  Receipt Date: 20140106
  Transmission Date: 20141002
  Serious: Yes (Other)
  Sender: FDA-Public Use
  Company Number: JP-AMGEN-JPNSP2013076502

PATIENT
  Age: 11 Year
  Sex: Female

DRUGS (2)
  1. ENBREL [Suspect]
     Indication: JUVENILE IDIOPATHIC ARTHRITIS
     Dosage: UNK
     Route: 058
  2. RHEUMATREX                         /00113802/ [Concomitant]
     Dosage: UNK

REACTIONS (1)
  - Mitral valve incompetence [Not Recovered/Not Resolved]
